FAERS Safety Report 8537328-X (Version None)
Quarter: 2012Q3

REPORT INFORMATION
  Report Type: 
  Country: None (occurrence: None)
  Receive Date: 20120725
  Receipt Date: 20120717
  Transmission Date: 20120928
  Serious: Yes (Hospitalization, Disabling, Other)
  Sender: FDA-Public Use
  Company Number: US-009507513-2012SP005876

PATIENT

DRUGS (1)
  1. NUVARING [Suspect]
     Indication: CONTRACEPTION
     Dates: start: 20080401, end: 20090201

REACTIONS (17)
  - SYSTEMIC LUPUS ERYTHEMATOSUS [None]
  - CARDIAC DISORDER [None]
  - INFLUENZA LIKE ILLNESS [None]
  - ESCHERICHIA URINARY TRACT INFECTION [None]
  - INFECTION [None]
  - FOLATE DEFICIENCY [None]
  - PNEUMONIA [None]
  - PHARYNGITIS STREPTOCOCCAL [None]
  - MOUTH ULCERATION [None]
  - VITAMIN B12 DEFICIENCY [None]
  - IRON DEFICIENCY [None]
  - ANAEMIA [None]
  - UNDIFFERENTIATED CONNECTIVE TISSUE DISEASE [None]
  - PULMONARY HYPERTENSION [None]
  - PULMONARY EMBOLISM [None]
  - THROMBOSIS [None]
  - PAIN [None]
